FAERS Safety Report 4616002-6 (Version None)
Quarter: 2005Q1

REPORT INFORMATION
  Report Type: 
  Country: None (occurrence: None)
  Receive Date: 20050323
  Receipt Date: 20050310
  Transmission Date: 20050727
  Serious: Yes (Other)
  Sender: FDA-Public Use
  Company Number: APCDSS2002000706

PATIENT
  Sex: Male
  Weight: 49 kg

DRUGS (8)
  1. REMICADE [Suspect]
     Route: 050
     Dates: start: 20020613
  2. REMICADE [Suspect]
     Route: 050
     Dates: start: 20020613
  3. REMICADE [Suspect]
     Route: 050
     Dates: start: 20020613
  4. REMICADE [Suspect]
     Indication: CROHN'S DISEASE
     Route: 050
     Dates: start: 20020613
  5. 5 ASA [Concomitant]
     Route: 049
  6. TPN [Concomitant]
  7. ENTERAL NUTRITION [Concomitant]
  8. PENTASA [Concomitant]
     Indication: CROHN'S DISEASE
     Route: 049

REACTIONS (2)
  - MOUTH ULCERATION [None]
  - RETROPERITONEAL ABSCESS [None]
